FAERS Safety Report 5453127-X (Version None)
Quarter: 2007Q3

REPORT INFORMATION
  Report Type: 
  Country: None (occurrence: None)
  Receive Date: 20070914
  Receipt Date: 20070904
  Transmission Date: 20080115
  Serious: Yes (Other)
  Sender: FDA-Public Use
  Company Number: FR-PFIZER INC-2007074152

PATIENT
  Age: 45 Year
  Sex: Female

DRUGS (1)
  1. SUTENT [Suspect]
     Dosage: DAILY DOSE:50MG
     Route: 048

REACTIONS (4)
  - DIARRHOEA [None]
  - HAEMOGLOBIN DECREASED [None]
  - METRORRHAGIA [None]
  - TONGUE DISORDER [None]
